FAERS Safety Report 5723677-7 (Version None)
Quarter: 2008Q2

REPORT INFORMATION
  Report Type: 
  Country: None (occurrence: None)
  Receive Date: 20080430
  Receipt Date: 20080421
  Transmission Date: 20081010
  Serious: Yes (Hospitalization, Other)
  Sender: FDA-Public Use
  Company Number: US-AVENTIS-200812582US

PATIENT
  Sex: Female
  Weight: 58.96 kg

DRUGS (6)
  1. ARAVA [Suspect]
     Indication: RHEUMATOID ARTHRITIS
     Dosage: DOSE: UNK
     Route: 048
     Dates: start: 20020101, end: 20070801
  2. HUMIRA [Suspect]
     Indication: RHEUMATOID ARTHRITIS
     Dosage: DOSE: 40MG, 1 IN 2 WK
     Route: 058
     Dates: start: 20070301, end: 20070701
  3. HUMIRA [Suspect]
     Dosage: DOSE: 40MG, 1 IN 2 WK
     Route: 058
     Dates: start: 20070801, end: 20070801
  4. LEVOTHYROXINE SODIUM [Concomitant]
     Dosage: DOSE: UNK
     Route: 048
  5. PREDNISONE [Concomitant]
     Indication: RHEUMATOID ARTHRITIS
     Route: 048
  6. AMITRIPTLINE HCL [Concomitant]
     Dosage: DOSE: UNK
     Route: 048

REACTIONS (2)
  - HEPATIC ENZYME INCREASED [None]
  - SURGERY [None]
